FAERS Safety Report 9426765 (Version 1)
Quarter: 2013Q3

REPORT INFORMATION
  Report Type: Spontaneous
  Country: FR (occurrence: FR)
  Receive Date: 20130730
  Receipt Date: 20130730
  Transmission Date: 20140515
  Serious: Yes (Other)
  Sender: FDA-Public Use
  Company Number: FR-MILLENNIUM PHARMACEUTICALS, INC.-2013-05708

PATIENT
  Sex: 0

DRUGS (8)
  1. VELCADE [Suspect]
     Indication: PLASMA CELL MYELOMA
     Dosage: 1.3 MG/M2, UNK
     Route: 065
     Dates: start: 200912
  2. MELPHALAN [Concomitant]
     Dosage: 9 MG/M2, UNK
     Route: 065
     Dates: start: 200912
  3. PREDNISONE [Concomitant]
     Dosage: 60 MG/M2, UNK
     Route: 065
     Dates: start: 200912
  4. LENALIDOMIDE [Concomitant]
     Dosage: UNK
     Route: 065
     Dates: start: 201003
  5. LENALIDOMIDE [Concomitant]
     Dosage: 15 MG, QD
     Dates: start: 201005
  6. DEXAMETHASONE [Concomitant]
     Dosage: UNK
     Route: 065
     Dates: start: 201003
  7. DEXAMETHASONE [Concomitant]
     Dosage: 20 MG, UNK
     Dates: start: 201005
  8. DOXORUBICIN [Concomitant]
     Dosage: 30 MG/M2, UNK
     Route: 065
     Dates: start: 201005

REACTIONS (2)
  - Spinal fracture [Unknown]
  - Haematotoxicity [Unknown]
